FAERS Safety Report 23869824 (Version 2)
Quarter: 2024Q2

REPORT INFORMATION
  Report Type: Spontaneous
  Country: CN (occurrence: CN)
  Receive Date: 20240517
  Receipt Date: 20240521
  Transmission Date: 20240716
  Serious: Yes (Other)
  Sender: FDA-Public Use
  Company Number: CN-BAYER-2024A068031

PATIENT
  Age: 71 Year
  Sex: Female

DRUGS (10)
  1. STIVARGA [Suspect]
     Active Substance: REGORAFENIB\REGORAFENIB MONOHYDRATE
     Indication: Soft tissue sarcoma
     Dosage: 40 MG, QD
     Route: 048
     Dates: start: 20210310, end: 20210315
  2. NIFEDIPINE [Suspect]
     Active Substance: NIFEDIPINE
     Indication: Hypertension
     Dosage: 60 MG, QD
     Route: 048
  3. OXYCODONE HYDROCHLORIDE [Concomitant]
     Active Substance: OXYCODONE HYDROCHLORIDE
     Dosage: 30 MG, BID
     Route: 048
     Dates: start: 202009, end: 20210309
  4. OXYCODONE HYDROCHLORIDE [Concomitant]
     Active Substance: OXYCODONE HYDROCHLORIDE
     Dosage: 40 MG, BID
     Route: 048
     Dates: start: 20210310, end: 20210315
  5. OXYCODONE HYDROCHLORIDE [Concomitant]
     Active Substance: OXYCODONE HYDROCHLORIDE
     Dosage: 40 MG, BID
     Route: 048
     Dates: start: 20210316, end: 20210316
  6. OXYCODONE HYDROCHLORIDE [Concomitant]
     Active Substance: OXYCODONE HYDROCHLORIDE
     Dosage: 30 MG, BID
     Route: 048
     Dates: start: 20210317, end: 20210321
  7. CELECOXIB [Concomitant]
     Active Substance: CELECOXIB
     Dosage: 0.2 G, BID
     Route: 048
     Dates: start: 202009, end: 20210321
  8. MORPHINE SULFATE [Concomitant]
     Active Substance: MORPHINE SULFATE
     Dosage: 20 MG, INTRA-ANAL
     Dates: start: 202009
  9. ALBUMIN HUMAN [Concomitant]
     Active Substance: ALBUMIN HUMAN
     Indication: Blood albumin abnormal
     Dosage: 50 ML, QD
     Route: 042
     Dates: start: 202103
  10. FENTANYL [Concomitant]
     Active Substance: FENTANYL\FENTANYL CITRATE
     Dosage: 4.2 MG, Q72HR
     Route: 061
     Dates: start: 20210321

REACTIONS (2)
  - Mental disorder [Recovered/Resolved]
  - Off label use [None]

NARRATIVE: CASE EVENT DATE: 20210310
